FAERS Safety Report 17751553 (Version 1)
Quarter: 2020Q2

REPORT INFORMATION
  Report Type: Spontaneous
  Country: AR (occurrence: AR)
  Receive Date: 20200506
  Receipt Date: 20200506
  Transmission Date: 20200714
  Serious: Yes (Other)
  Sender: FDA-Public Use
  Company Number: AR-PFIZER INC-2020181092

PATIENT
  Age: 66 Year
  Sex: Male

DRUGS (2)
  1. INLYTA [Suspect]
     Active Substance: AXITINIB
     Indication: RENAL CANCER METASTATIC
     Dosage: 10 MG, DAILY
     Dates: start: 20181018
  2. INLYTA [Suspect]
     Active Substance: AXITINIB
     Dosage: 5 MG, ONE PER DAY, EVERY OTHER DAY

REACTIONS (4)
  - Prostate infection [Unknown]
  - Malaise [Unknown]
  - Skin atrophy [Unknown]
  - Urinary tract infection [Unknown]

NARRATIVE: CASE EVENT DATE: 20200504
